FAERS Safety Report 9437246 (Version 4)
Quarter: 2014Q3

REPORT INFORMATION
  Report Type: Spontaneous
  Country: DK (occurrence: DK)
  Receive Date: 20130802
  Receipt Date: 20140925
  Transmission Date: 20150326
  Serious: Yes (Hospitalization)
  Sender: FDA-Public Use
  Company Number: PHHY2013DK082267

PATIENT
  Age: 57 Year
  Sex: Male

DRUGS (3)
  1. ZOMETA [Suspect]
     Active Substance: ZOLEDRONIC ACID
     Indication: METASTASES TO BONE
     Dosage: 4 MG/100 ML, ONCE EVERY THREE MONTH
     Route: 042
     Dates: start: 2009, end: 2011
  2. XGEVA [Suspect]
     Active Substance: DENOSUMAB
     Indication: METASTASES TO BONE
     Dosage: 120 MG
     Route: 058
     Dates: start: 201106, end: 201212
  3. ZOMETA [Suspect]
     Active Substance: ZOLEDRONIC ACID
     Dosage: DOSIS: 1 GANG HVER 3. M?NED.STYRKE: 4 MG/100 ML.
     Route: 042
     Dates: start: 2009, end: 2011

REACTIONS (4)
  - Osteonecrosis of jaw [Recovered/Resolved with Sequelae]
  - Soft tissue infection [Recovered/Resolved]
  - Oral pain [Recovered/Resolved]
  - Osteomyelitis [Recovered/Resolved]

NARRATIVE: CASE EVENT DATE: 20130404
